FAERS Safety Report 9374721 (Version 1)
Quarter: 2013Q2

REPORT INFORMATION
  Report Type: Report from Study
  Country: CA (occurrence: CA)
  Receive Date: 20130628
  Receipt Date: 20130628
  Transmission Date: 20140414
  Serious: Yes (Other)
  Sender: FDA-Public Use
  Company Number: CA-JNJFOC-20130617695

PATIENT
  Sex: Female

DRUGS (1)
  1. USTEKINUMAB [Suspect]
     Indication: PSORIASIS
     Dosage: PARTNER^S DOSING
     Route: 065
     Dates: start: 201106

REACTIONS (2)
  - Premature labour [Unknown]
  - Exposure via father [Unknown]
